FAERS Safety Report 12799778 (Version 1)
Quarter: 2016Q3

REPORT INFORMATION
  Report Type: Report from Study
  Country: US (occurrence: US)
  Receive Date: 20160930
  Receipt Date: 20160930
  Transmission Date: 20161109
  Serious: Yes (Other)
  Sender: FDA-Public Use
  Company Number: US-AMGEN-USASL2016133701

PATIENT

DRUGS (1)
  1. KYPROLIS [Suspect]
     Active Substance: CARFILZOMIB
     Indication: PRODUCT USED FOR UNKNOWN INDICATION
     Dosage: UNK
     Route: 065

REACTIONS (23)
  - Spinal compression fracture [Unknown]
  - Vomiting [Unknown]
  - Cancer pain [Unknown]
  - Laryngitis [Unknown]
  - Bone disorder [Unknown]
  - Immunology test abnormal [Unknown]
  - Peripheral venous disease [Unknown]
  - Arthralgia [Unknown]
  - Cardiomyopathy [Unknown]
  - Chronic kidney disease [Unknown]
  - Arthrodesis [Unknown]
  - Brain neoplasm malignant [Unknown]
  - Constipation [Unknown]
  - Fall [Unknown]
  - Mental disorder [Unknown]
  - Nausea [Unknown]
  - Muscle spasms [Unknown]
  - Melanocytic naevus [Unknown]
  - Renal failure [Unknown]
  - Adverse drug reaction [Unknown]
  - Neck pain [Unknown]
  - Benign neoplasm of skin [Unknown]
  - Pigmentation disorder [Unknown]

NARRATIVE: CASE EVENT DATE: 20150917
